FAERS Safety Report 6808530-X (Version None)
Quarter: 2010Q2

REPORT INFORMATION
  Report Type: 
  Country: None (occurrence: None)
  Receive Date: 20100629
  Receipt Date: 20090811
  Transmission Date: 20101027
  Serious: Yes (Other)
  Sender: FDA-Public Use
  Company Number: US-PFIZER INC-2009235514

PATIENT
  Sex: Male

DRUGS (2)
  1. ARTHROTEC [Suspect]
     Indication: BACK PAIN
     Dosage: 75 MG, 2X/DAY
     Route: 048
     Dates: start: 20040101, end: 20090101
  2. ARTHROTEC [Suspect]
     Indication: EPICONDYLITIS

REACTIONS (1)
  - MYOCARDIAL INFARCTION [None]
